FAERS Safety Report 19002139 (Version 1)
Quarter: 2021Q1

REPORT INFORMATION
  Report Type: Spontaneous
  Country: US (occurrence: US)
  Receive Date: 20210312
  Receipt Date: 20210312
  Transmission Date: 20210420
  Serious: Yes (Hospitalization)
  Sender: FDA-Public Use
  Company Number: None

PATIENT
  Sex: Male
  Weight: 17.5 kg

DRUGS (4)
  1. EROPODIFR (VP?16) [Concomitant]
  2. G?CSF (FILGRASTIM, AMGEN) [Concomitant]
     Active Substance: FILGRASTIM
  3. CARBOPLATIN. [Suspect]
     Active Substance: CARBOPLATIN
  4. MELPHALAN. [Concomitant]
     Active Substance: MELPHALAN

REACTIONS (8)
  - Venoocclusive liver disease [None]
  - Post procedural complication [None]
  - Mucosal inflammation [None]
  - Thrombotic microangiopathy [None]
  - Ascites [None]
  - Venoocclusive disease [None]
  - Respiratory disorder [None]
  - Hypertension [None]

NARRATIVE: CASE EVENT DATE: 20210307
